FAERS Safety Report 17545362 (Version 1)
Quarter: 2020Q1

REPORT INFORMATION
  Report Type: Spontaneous
  Country: US (occurrence: US)
  Receive Date: 20200316
  Receipt Date: 20200316
  Transmission Date: 20200409
  Serious: No
  Sender: FDA-Public Use
  Company Number: US-AMNEAL PHARMACEUTICALS-2019-AMRX-03435

PATIENT
  Age: 6 Year
  Sex: Male
  Weight: 28 kg

DRUGS (6)
  1. ALBUTEROL [SALBUTAMOL] [Concomitant]
     Active Substance: ALBUTEROL
     Indication: PRODUCT USED FOR UNKNOWN INDICATION
     Dosage: 2 SPRAYS
     Dates: start: 20191214, end: 20191214
  2. OSELTAMIVIR PHOSPHATE. [Suspect]
     Active Substance: OSELTAMIVIR PHOSPHATE
     Indication: PYREXIA
     Dosage: 10 MILLILITER, BID
     Route: 048
     Dates: start: 20191214, end: 20191217
  3. OSELTAMIVIR PHOSPHATE. [Suspect]
     Active Substance: OSELTAMIVIR PHOSPHATE
     Indication: DIARRHOEA
  4. DERMADEW [PARAFFIN] [Concomitant]
     Indication: ECZEMA
     Dosage: UNK
     Route: 061
  5. OSELTAMIVIR PHOSPHATE. [Suspect]
     Active Substance: OSELTAMIVIR PHOSPHATE
     Indication: COUGH
  6. MOTRIN [Concomitant]
     Active Substance: IBUPROFEN
     Indication: PYREXIA
     Dosage: 7 MILLILITER, EVERY 6HR AS NEEDED
     Route: 065
     Dates: start: 20191214, end: 20191218

REACTIONS (2)
  - Nightmare [Recovered/Resolved]
  - Cough [Recovered/Resolved]

NARRATIVE: CASE EVENT DATE: 20191214
